FAERS Safety Report 20187126 (Version 1)
Quarter: 2021Q4

REPORT INFORMATION
  Report Type: Spontaneous
  Country: None (occurrence: US)
  Receive Date: 20211215
  Receipt Date: 20211215
  Transmission Date: 20220303
  Serious: No
  Sender: FDA-Public Use
  Company Number: US-ITALFARMACO SPA-2123033

PATIENT
  Age: 78 Year
  Sex: Female

DRUGS (10)
  1. TIGLUTIK [Suspect]
     Active Substance: RILUZOLE
     Indication: Amyotrophic lateral sclerosis
     Dates: start: 20210917, end: 20211201
  2. LORTAB [Concomitant]
     Active Substance: ACETAMINOPHEN\HYDROCODONE BITARTRATE
  3. XANAX [Concomitant]
     Active Substance: ALPRAZOLAM
  4. DOCUSATE [Concomitant]
     Active Substance: DOCUSATE
  5. OXYCODONE. [Concomitant]
     Active Substance: OXYCODONE HYDROCHLORIDE
  6. PROMETHAZINE [Concomitant]
     Active Substance: PROMETHAZINE HYDROCHLORIDE
  7. ROPINIROLE [Concomitant]
     Active Substance: ROPINIROLE
  8. ZOLPIDEM [Concomitant]
     Active Substance: ZOLPIDEM TARTRATE
  9. ALBUTEROL [Concomitant]
     Active Substance: ALBUTEROL
  10. VALIUM [Concomitant]
     Active Substance: DIAZEPAM

REACTIONS (2)
  - Nausea [Recovered/Resolved]
  - Abdominal discomfort [Unknown]

NARRATIVE: CASE EVENT DATE: 20210917
